FAERS Safety Report 7349752-1 (Version None)
Quarter: 2011Q1

REPORT INFORMATION
  Report Type: 
  Country: None (occurrence: None)
  Receive Date: 20110314
  Receipt Date: 20110310
  Transmission Date: 20110831
  Serious: Yes (Death, Life-Threatening, Hospitalization)
  Sender: FDA-Public Use
  Company Number: JP-PFIZER INC-2008100446

PATIENT
  Age: 9 Year
  Sex: Female
  Weight: 24.2 kg

DRUGS (11)
  1. SILDENAFIL CITRATE [Suspect]
     Indication: PULMONARY HYPERTENSION
     Dosage: UNK
     Dates: start: 20080711, end: 20080928
  2. CEFTRIAXONE SODIUM [Concomitant]
     Dosage: UNK
     Route: 042
     Dates: start: 20080709, end: 20080719
  3. FAMOTIDINE [Concomitant]
     Dosage: UNK
     Route: 042
     Dates: start: 20080709, end: 20080728
  4. MIDAZOLAM [Concomitant]
     Dosage: UNK
     Route: 042
     Dates: start: 20080711, end: 20080928
  5. VECURONIUM BROMIDE [Concomitant]
     Dosage: UNK
     Route: 042
     Dates: start: 20080711, end: 20080928
  6. FENTANYL [Concomitant]
     Dosage: UNK
     Route: 042
     Dates: start: 20080711, end: 20080728
  7. NAFAMOSTAT MESILATE [Concomitant]
     Dosage: UNK
     Route: 030
     Dates: start: 20080710, end: 20080808
  8. EPOPROSTENOL SODIUM [Concomitant]
     Dosage: UNK
     Route: 042
     Dates: start: 20080711, end: 20080719
  9. MILRINONE [Concomitant]
     Dosage: UNK
     Route: 042
     Dates: start: 20080711, end: 20080720
  10. DOPAMINE HYDROCHLORIDE [Concomitant]
     Dosage: UNK
     Dates: start: 20080710
  11. DOBUTAMINE HYDROCHLORIDE [Concomitant]
     Dosage: UNK
     Dates: start: 20080710

REACTIONS (3)
  - HAEMORRHAGE [None]
  - CANDIDIASIS [None]
  - THROMBOCYTOPENIA [None]
